FAERS Safety Report 10820789 (Version 1)
Quarter: 2015Q1

REPORT INFORMATION
  Report Type: Report from Study
  Country: US (occurrence: None)
  Receive Date: 20150213
  Receipt Date: 20150213
  Transmission Date: 20150721
  Serious: Yes (Hospitalization)
  Sender: FDA-Public Use
  Company Number: 2014BI138036

PATIENT
  Age: 34 Year
  Sex: Female

DRUGS (3)
  1. REBIF [Concomitant]
     Active Substance: INTERFERON BETA-1A
  2. COPAXONE [Concomitant]
     Active Substance: GLATIRAMER ACETATE
  3. TYSABRI [Suspect]
     Active Substance: NATALIZUMAB
     Indication: MULTIPLE SCLEROSIS
     Route: 042
     Dates: start: 20071214, end: 20141121

REACTIONS (3)
  - Impaired work ability [None]
  - Progressive multifocal leukoencephalopathy [None]
  - Immune reconstitution inflammatory syndrome [None]
